FAERS Safety Report 16806160 (Version 1)
Quarter: 2019Q3

REPORT INFORMATION
  Report Type: Spontaneous
  Country: RO (occurrence: RO)
  Receive Date: 20190913
  Receipt Date: 20190913
  Transmission Date: 20191005
  Serious: Yes (Other)
  Sender: FDA-Public Use
  Company Number: RO-PFIZER INC-2019395948

PATIENT
  Sex: Female

DRUGS (3)
  1. PREDNISONE. [Concomitant]
     Active Substance: PREDNISONE
     Dosage: 5 MG, 2X/DAY
  2. XELJANZ [Suspect]
     Active Substance: TOFACITINIB CITRATE
     Indication: RHEUMATOID ARTHRITIS
     Dosage: 5 MG, 2X/DAY
     Dates: start: 201908
  3. METOTREXAT [Concomitant]
     Active Substance: METHOTREXATE SODIUM
     Dosage: 10 MG, CYCLIC (ONE VIAL AT EVERY 10 DAYS)

REACTIONS (4)
  - Leukopenia [Unknown]
  - Rash [Unknown]
  - Neutropenia [Unknown]
  - Thrombocytopenia [Unknown]
